FAERS Safety Report 16382786 (Version 1)
Quarter: 2019Q2

REPORT INFORMATION
  Report Type: Spontaneous
  Country: US (occurrence: US)
  Receive Date: 20190603
  Receipt Date: 20190603
  Transmission Date: 20190711
  Serious: Yes (Hospitalization)
  Sender: FDA-Public Use
  Company Number: US-ALKERMES INC.-ALK-2019-002880

PATIENT
  Age: 45 Year
  Sex: Male

DRUGS (9)
  1. VOLTAREN [Suspect]
     Active Substance: DICLOFENAC SODIUM
     Indication: ANKLE FRACTURE
  2. VIVITROL [Suspect]
     Active Substance: NALTREXONE
     Indication: ALCOHOLISM
     Dosage: 380 MG, QMO
     Route: 030
  3. SOMA [Suspect]
     Active Substance: CARISOPRODOL
     Indication: HEAD INJURY
     Dosage: UNK
     Dates: start: 201905, end: 201905
  4. ANTABUSE [Concomitant]
     Active Substance: DISULFIRAM
     Indication: PRODUCT USED FOR UNKNOWN INDICATION
  5. VIVITROL [Suspect]
     Active Substance: NALTREXONE
     Indication: DRUG DEPENDENCE
  6. SOMA [Suspect]
     Active Substance: CARISOPRODOL
     Indication: ANKLE FRACTURE
  7. VOLTAREN [Suspect]
     Active Substance: DICLOFENAC SODIUM
     Indication: HEAD INJURY
     Dosage: UNK
     Dates: start: 201905, end: 201905
  8. GABAPENTIN. [Suspect]
     Active Substance: GABAPENTIN
     Indication: HEAD INJURY
     Dosage: UNK
     Dates: start: 201905, end: 201905
  9. GABAPENTIN. [Suspect]
     Active Substance: GABAPENTIN
     Indication: ANKLE FRACTURE

REACTIONS (6)
  - Pain [Not Recovered/Not Resolved]
  - Ankle fracture [Unknown]
  - Head injury [Unknown]
  - Inadequate analgesia [Not Recovered/Not Resolved]
  - Road traffic accident [Unknown]
  - Malaise [Unknown]

NARRATIVE: CASE EVENT DATE: 201905
